FAERS Safety Report 23410966 (Version 1)
Quarter: 2024Q1

REPORT INFORMATION
  Report Type: Spontaneous
  Country: US (occurrence: None)
  Receive Date: 20240116
  Receipt Date: 20240116
  Transmission Date: 20240409
  Serious: No
  Sender: FDA-Public Use
  Company Number: None

PATIENT
  Age: 45 Year
  Sex: Female
  Weight: 57.7 kg

DRUGS (1)
  1. FULVESTRANT [Suspect]
     Active Substance: FULVESTRANT
     Indication: Breast cancer metastatic
     Dosage: 500 MG MILLIGRAM(S)  EVERY 28 DAYS INTRAMUSCULAR?
     Route: 030

REACTIONS (3)
  - Dyspnoea [None]
  - Wheezing [None]
  - Paraesthesia [None]

NARRATIVE: CASE EVENT DATE: 20240112
